FAERS Safety Report 4807501-2 (Version None)
Quarter: 2005Q4

REPORT INFORMATION
  Report Type: 
  Country: None (occurrence: None)
  Receive Date: 20051024
  Receipt Date: 20051014
  Transmission Date: 20060501
  Serious: Yes (Death)
  Sender: FDA-Public Use
  Company Number: JP-JNJFOC-20050703578

PATIENT
  Sex: Female

DRUGS (8)
  1. DUROTEP [Suspect]
     Route: 062
  2. DUROTEP [Suspect]
     Indication: CANCER PAIN
     Route: 062
  3. HALOPERIDOL [Suspect]
     Dosage: ^0.5A^
     Route: 041
  4. FLUNITRAZEPAM [Suspect]
     Dosage: ^0.5A^ DOSAGE FORM/DAY
     Route: 041
  5. LACTOMIN [Concomitant]
     Route: 048
  6. DIMETICONE [Concomitant]
     Route: 048
  7. ALBUMIN TANNATE [Concomitant]
     Route: 048
  8. ZOLPIDEM TARTRATE [Concomitant]
     Route: 048

REACTIONS (4)
  - ASPIRATION [None]
  - INJURY ASPHYXIATION [None]
  - RESPIRATORY FAILURE [None]
  - SUDDEN DEATH [None]
